FAERS Safety Report 23356690 (Version 2)
Quarter: 2024Q1

REPORT INFORMATION
  Report Type: Spontaneous
  Country: AU (occurrence: None)
  Receive Date: 20240102
  Receipt Date: 20240111
  Transmission Date: 20240410
  Serious: Yes (Other)
  Sender: FDA-Public Use
  Company Number: AU-PFIZER INC-202300446488

PATIENT
  Sex: Female

DRUGS (5)
  1. METHOTREXATE [Suspect]
     Active Substance: METHOTREXATE
     Indication: Synovitis
     Dosage: LOW DOSE
     Dates: start: 202003
  2. METHOTREXATE [Suspect]
     Active Substance: METHOTREXATE
     Dosage: INCREASED DOSE
     Dates: start: 202107, end: 202210
  3. PREDNISOLONE [Concomitant]
     Active Substance: PREDNISOLONE
     Indication: Synovitis
  4. PREDNISOLONE [Concomitant]
     Active Substance: PREDNISOLONE
     Dosage: SHORT COURSES OF LOW-DOSE
     Dates: start: 202107
  5. USTEKINUMAB [Concomitant]
     Active Substance: USTEKINUMAB
     Indication: Functional gastrointestinal disorder

REACTIONS (3)
  - Stress fracture [Recovered/Resolved]
  - Bone disorder [Recovered/Resolved]
  - Product use in unapproved indication [Unknown]

NARRATIVE: CASE EVENT DATE: 20221001
